FAERS Safety Report 9212555 (Version 1)
Quarter: 2013Q2

REPORT INFORMATION
  Report Type: Spontaneous
  Country: US (occurrence: US)
  Receive Date: 20130405
  Receipt Date: 20130405
  Transmission Date: 20140414
  Serious: Yes (Hospitalization)
  Sender: FDA-Public Use
  Company Number: US-BIOGENIDEC-2013BI029716

PATIENT
  Sex: Female

DRUGS (3)
  1. TYSABRI [Suspect]
     Indication: MULTIPLE SCLEROSIS
     Route: 042
     Dates: start: 20120213
  2. MEDICATION (NOS) [Concomitant]
     Indication: MIGRAINE
  3. METFORMIN [Concomitant]
     Indication: DIABETES MELLITUS
     Dates: start: 2005

REACTIONS (2)
  - Multiple sclerosis relapse [Not Recovered/Not Resolved]
  - Blood test abnormal [Unknown]
